FAERS Safety Report 4762454-0 (Version None)
Quarter: 2005Q3

REPORT INFORMATION
  Report Type: 
  Country: None (occurrence: None)
  Receive Date: 20050907
  Receipt Date: 20050829
  Transmission Date: 20060218
  Serious: Yes (Hospitalization)
  Sender: FDA-Public Use
  Company Number: 2005UW13084

PATIENT
  Age: 64 Year
  Sex: Male
  Weight: 112.7 kg

DRUGS (11)
  1. IRESSA [Suspect]
     Indication: COLON CANCER STAGE IV
     Dosage: 250 MG ORAL DAILY X 2 WEEK CYCLES
     Route: 048
     Dates: start: 20040412
  2. LEUCOVORIN [Suspect]
     Indication: COLON CANCER STAGE IV
     Dosage: 200 MG/M2 DAY 1
     Route: 042
     Dates: start: 20050412, end: 20050816
  3. FLUOROURACIL [Suspect]
     Indication: COLON CANCER STAGE IV
     Dosage: BOLUS ON DAY 1
     Route: 042
     Dates: start: 20040412, end: 20050816
  4. FLUOROURACIL [Suspect]
     Dosage: DAY 1 TO DAY 3
     Route: 042
     Dates: start: 20040412, end: 20050818
  5. AMBIEN [Concomitant]
     Dates: start: 20040330
  6. CLEOCIN T [Concomitant]
     Dates: start: 20040426
  7. FOLIC ACID [Concomitant]
     Dates: start: 20050208
  8. FRAGMIN [Concomitant]
     Dates: start: 20050322
  9. LASIX [Concomitant]
     Dates: start: 20050331
  10. MULTI-VITAMIN [Concomitant]
     Dates: start: 20050208
  11. ZOFRAN [Concomitant]
     Dates: start: 20040412

REACTIONS (3)
  - DEHYDRATION [None]
  - DIARRHOEA [None]
  - SYNCOPE [None]
